FAERS Safety Report 19152703 (Version 1)
Quarter: 2021Q2

REPORT INFORMATION
  Report Type: Spontaneous
  Country: US (occurrence: US)
  Receive Date: 20210417
  Receipt Date: 20210417
  Transmission Date: 20210717
  Serious: Yes (Hospitalization)
  Sender: FDA-Public Use
  Company Number: None

PATIENT
  Age: 62 Year
  Sex: Female
  Weight: 83.7 kg

DRUGS (3)
  1. DOXORUBICIN HYDROCHLORIDE. [Suspect]
     Active Substance: DOXORUBICIN HYDROCHLORIDE
     Dates: end: 20201217
  2. TAXOL [Suspect]
     Active Substance: PACLITAXEL
     Dates: end: 20210325
  3. CYCLOPHOSPHAMIDE. [Suspect]
     Active Substance: CYCLOPHOSPHAMIDE
     Dates: end: 20201217

REACTIONS (7)
  - Dyspnoea [None]
  - Pulmonary embolism [None]
  - Chest pain [None]
  - Blood culture positive [None]
  - Axillary vein thrombosis [None]
  - Subclavian vein thrombosis [None]
  - Abdominal pain [None]

NARRATIVE: CASE EVENT DATE: 20210401
